FAERS Safety Report 5321404-9 (Version None)
Quarter: 2007Q2

REPORT INFORMATION
  Report Type: 
  Country: None (occurrence: None)
  Receive Date: 20070507
  Receipt Date: 20070507
  Transmission Date: 20071010
  Serious: Yes (Hospitalization)
  Sender: FDA-Public Use
  Company Number: None

PATIENT
  Age: 74 Year
  Sex: Male

DRUGS (3)
  1. LISINOPRIL [Suspect]
     Indication: CARDIAC FAILURE CONGESTIVE
     Dosage: 60MG  QD  PO
     Route: 048
  2. LISINOPRIL [Suspect]
     Indication: DIABETES MELLITUS
     Dosage: 60MG  QD  PO
     Route: 048
  3. VALSARTAN [Suspect]
     Dosage: 20MG  QD  PO
     Route: 048

REACTIONS (1)
  - HYPERKALAEMIA [None]
